FAERS Safety Report 13277240 (Version 1)
Quarter: 2017Q1

REPORT INFORMATION
  Report Type: Report from Study
  Country: JP (occurrence: JP)
  Receive Date: 20170228
  Receipt Date: 20170228
  Transmission Date: 20170428
  Serious: Yes (Hospitalization)
  Sender: FDA-Public Use
  Company Number: JP-SA-2017SA031195

PATIENT
  Age: 72 Year
  Sex: Female

DRUGS (3)
  1. PHOSBLOCK [Suspect]
     Active Substance: FERRIC HYDROXIDE
     Route: 048
     Dates: start: 20140708
  2. DARBEPOETIN ALFA [Suspect]
     Active Substance: DARBEPOETIN ALFA
     Route: 042
     Dates: start: 20160329
  3. DARBEPOETIN ALFA [Suspect]
     Active Substance: DARBEPOETIN ALFA
     Route: 042
     Dates: start: 20160126, end: 20160322

REACTIONS (1)
  - Arteriovenous fistula site complication [Recovering/Resolving]

NARRATIVE: CASE EVENT DATE: 20160810
